FAERS Safety Report 23176292 (Version 1)
Quarter: 2023Q4

REPORT INFORMATION
  Report Type: Spontaneous
  Country: DE (occurrence: DE)
  Receive Date: 20231113
  Receipt Date: 20231113
  Transmission Date: 20240110
  Serious: Yes (Other)
  Sender: FDA-Public Use
  Company Number: DE-EMBRYOTOX-202302631

PATIENT
  Age: 1 Day
  Sex: Female
  Weight: 2.36 kg

DRUGS (3)
  1. LEVETIRACETAM [Suspect]
     Active Substance: LEVETIRACETAM
     Indication: Product used for unknown indication
     Dosage: 1000 [MG/D ]/ 1000 MG/D
     Route: 064
     Dates: start: 20180611, end: 20190318
  2. RHOPHYLAC [Concomitant]
     Active Substance: HUMAN RHO(D) IMMUNE GLOBULIN
     Indication: Product used for unknown indication
     Dosage: 300 [?G ]/ 300 ?G, SINGLE DOSE
     Route: 064
     Dates: start: 20190309, end: 20190309
  3. CEFAZOLIN [Concomitant]
     Active Substance: CEFAZOLIN
     Indication: Product used for unknown indication
     Dosage: 2 [G ]/ 2 G, SINGLE DOSE
     Route: 064
     Dates: start: 20190318, end: 20190318

REACTIONS (2)
  - Small for dates baby [Recovering/Resolving]
  - Foetal exposure during pregnancy [Unknown]

NARRATIVE: CASE EVENT DATE: 20190301
